FAERS Safety Report 24036152 (Version 1)
Quarter: 2024Q3

REPORT INFORMATION
  Report Type: Spontaneous
  Country: AU (occurrence: AU)
  Receive Date: 20240701
  Receipt Date: 20240701
  Transmission Date: 20241016
  Serious: Yes (Other)
  Sender: OTSUKA
  Company Number: AU-OTSUKA-2024_018234

PATIENT
  Age: 96 Year

DRUGS (1)
  1. INQOVI [Suspect]
     Active Substance: CEDAZURIDINE\DECITABINE
     Indication: Product used for unknown indication
     Dosage: 135 MG (35 MG DECITABINE AND 100 MG CEDAZURIDINE) QD 4 DAYS EVERY 35-DAY CYCLE
     Route: 065
     Dates: start: 20230108

REACTIONS (2)
  - Red blood cell transfusion [Unknown]
  - Inappropriate schedule of product administration [Unknown]

NARRATIVE: CASE EVENT DATE: 20230108
